FAERS Safety Report 15584679 (Version 2)
Quarter: 2018Q4

REPORT INFORMATION
  Report Type: Spontaneous
  Country: US (occurrence: US)
  Receive Date: 20181102
  Receipt Date: 20181215
  Transmission Date: 20190205
  Serious: Yes (Other)
  Sender: FDA-Public Use
  Company Number: US-AMGEN-USASP2018152337

PATIENT
  Sex: Female
  Weight: 75.75 kg

DRUGS (6)
  1. MTX [Suspect]
     Active Substance: METHOTREXATE SODIUM
     Indication: PRODUCT USED FOR UNKNOWN INDICATION
     Dosage: UNK
     Route: 048
  2. XELJANZ [Concomitant]
     Active Substance: TOFACITINIB CITRATE
     Dosage: UNK
     Route: 065
     Dates: start: 20180618
  3. NAPROXEN SODIUM. [Concomitant]
     Active Substance: NAPROXEN SODIUM
     Dosage: 220 MG, AS NECESSARY
     Route: 065
  4. ENBREL [Suspect]
     Active Substance: ETANERCEPT
     Indication: PSORIATIC ARTHROPATHY
     Dosage: 50 MG, QWK
     Route: 058
     Dates: start: 20180529, end: 20180718
  5. MTX [Suspect]
     Active Substance: METHOTREXATE SODIUM
     Dosage: 20 MG, QWK
     Route: 048
  6. XELJANZ XR [Concomitant]
     Active Substance: TOFACITINIB CITRATE
     Dosage: 11 MG, QD
     Route: 048
     Dates: start: 20180501, end: 2018

REACTIONS (3)
  - Psoriatic arthropathy [Unknown]
  - Psoriasis [Unknown]
  - Drug ineffective [Unknown]

NARRATIVE: CASE EVENT DATE: 2018
